FAERS Safety Report 18349664 (Version 1)
Quarter: 2020Q4

REPORT INFORMATION
  Report Type: Spontaneous
  Country: US (occurrence: US)
  Receive Date: 20201006
  Receipt Date: 20201006
  Transmission Date: 20210114
  Serious: Yes (Hospitalization, Other)
  Sender: FDA-Public Use
  Company Number: US-ASTRAZENECA-2020SF27430

PATIENT
  Age: 18809 Day
  Sex: Male
  Weight: 122.5 kg

DRUGS (30)
  1. FARXIGA [Suspect]
     Active Substance: DAPAGLIFLOZIN PROPANEDIOL
     Indication: BLOOD PRESSURE DECREASED
     Route: 048
     Dates: start: 201708, end: 20181003
  2. ZETIA [Concomitant]
     Active Substance: EZETIMIBE
  3. HUMALOG [Concomitant]
     Active Substance: INSULIN LISPRO
  4. INDOMETHACIN. [Concomitant]
     Active Substance: INDOMETHACIN
  5. COLACE [Concomitant]
     Active Substance: DOCUSATE SODIUM
  6. METHOCARBAMOL. [Concomitant]
     Active Substance: METHOCARBAMOL
  7. LISINOPRIL. [Concomitant]
     Active Substance: LISINOPRIL
  8. FARXIGA [Suspect]
     Active Substance: DAPAGLIFLOZIN PROPANEDIOL
     Indication: TYPE 2 DIABETES MELLITUS
     Route: 048
     Dates: start: 201708, end: 20181003
  9. ZOSYN [Concomitant]
     Active Substance: PIPERACILLIN SODIUM\TAZOBACTAM SODIUM
  10. VANCOMYCIN [Concomitant]
     Active Substance: VANCOMYCIN
  11. FLUOXETINE [Concomitant]
     Active Substance: FLUOXETINE HYDROCHLORIDE
  12. METFORMIN [Concomitant]
     Active Substance: METFORMIN HYDROCHLORIDE
  13. ATORVASTATIN [Concomitant]
     Active Substance: ATORVASTATIN
  14. ALOGLIPTIN. [Concomitant]
     Active Substance: ALOGLIPTIN
  15. FARXIGA [Suspect]
     Active Substance: DAPAGLIFLOZIN PROPANEDIOL
     Indication: WEIGHT DECREASED
     Route: 048
     Dates: start: 201708, end: 20181003
  16. NAPROXEN. [Concomitant]
     Active Substance: NAPROXEN
  17. FUROSEMIDE. [Concomitant]
     Active Substance: FUROSEMIDE
  18. OMEPRAZOLE. [Concomitant]
     Active Substance: OMEPRAZOLE
  19. CHANTIX [Concomitant]
     Active Substance: VARENICLINE TARTRATE
  20. BYDUREON [Concomitant]
     Active Substance: EXENATIDE
  21. HYDROCODONE/ACETAMINOPHEN [Concomitant]
     Active Substance: ACETAMINOPHEN\HYDROCODONE
  22. TRADJENTA [Concomitant]
     Active Substance: LINAGLIPTIN
  23. LANTUS [Concomitant]
     Active Substance: INSULIN GLARGINE
  24. SERTRALINE [Concomitant]
     Active Substance: SERTRALINE HYDROCHLORIDE
  25. LINEZOLID. [Concomitant]
     Active Substance: LINEZOLID
  26. EZETIMIBE. [Concomitant]
     Active Substance: EZETIMIBE
  27. DEMEROL [Concomitant]
     Active Substance: MEPERIDINE HYDROCHLORIDE
  28. OXYCODONE/ACETAMINOPHEN [Concomitant]
     Active Substance: ACETAMINOPHEN\OXYCODONE HYDROCHLORIDE
  29. GABAPENTIN. [Concomitant]
     Active Substance: GABAPENTIN
  30. PRAZOSIN. [Concomitant]
     Active Substance: PRAZOSIN

REACTIONS (10)
  - Scrotal pain [Unknown]
  - Necrotising soft tissue infection [Unknown]
  - Cellulitis of male external genital organ [Unknown]
  - Perirectal abscess [Unknown]
  - Fournier^s gangrene [Unknown]
  - Pyrexia [Unknown]
  - Scrotal swelling [Unknown]
  - Erythema [Unknown]
  - Scrotal gangrene [Unknown]
  - Scrotal abscess [Unknown]

NARRATIVE: CASE EVENT DATE: 20180725
